FAERS Safety Report 13857920 (Version 1)
Quarter: 2017Q3

REPORT INFORMATION
  Report Type: Spontaneous
  Country: ES (occurrence: ES)
  Receive Date: 20170811
  Receipt Date: 20170811
  Transmission Date: 20171127
  Serious: Yes (Hospitalization, Other)
  Sender: FDA-Public Use
  Company Number: ES-AUROBINDO-AUR-APL-2013-10637

PATIENT

DRUGS (2)
  1. METFORMINA AUROBINDO COMPRIMIDOS RECUBIERTOS CON PELICULA 850MG [Suspect]
     Active Substance: METFORMIN HYDROCHLORIDE
     Indication: TYPE 2 DIABETES MELLITUS
     Dosage: 850 MG,3 TIMES A DAY,
     Route: 065
  2. GLICLAZIDE [Concomitant]
     Active Substance: GLICLAZIDE
     Indication: TYPE 2 DIABETES MELLITUS
     Dosage: UNK UNK,UNK,
     Route: 065

REACTIONS (3)
  - Lactic acidosis [Recovering/Resolving]
  - Renal impairment [Recovering/Resolving]
  - Nephropathy toxic [Recovering/Resolving]
